FAERS Safety Report 12296223 (Version 9)
Quarter: 2016Q4

REPORT INFORMATION
  Report Type: Report from Study
  Country: CA (occurrence: CA)
  Receive Date: 20160422
  Receipt Date: 20161213
  Transmission Date: 20170207
  Serious: Yes (Hospitalization, Other)
  Sender: FDA-Public Use
  Company Number: CA-JNJFOC-20151120197

PATIENT
  Age: 43 Year
  Sex: Male
  Weight: 68 kg

DRUGS (13)
  1. RAMIPRIL. [Concomitant]
     Active Substance: RAMIPRIL
     Indication: CARDIAC DISORDER
     Route: 065
  2. REMICADE [Suspect]
     Active Substance: INFLIXIMAB
     Indication: CROHN^S DISEASE
     Route: 042
     Dates: start: 20130612
  3. REMICADE [Suspect]
     Active Substance: INFLIXIMAB
     Indication: CROHN^S DISEASE
     Route: 042
     Dates: start: 201602
  4. REMICADE [Suspect]
     Active Substance: INFLIXIMAB
     Indication: CROHN^S DISEASE
     Route: 042
     Dates: start: 20160413
  5. REMICADE [Suspect]
     Active Substance: INFLIXIMAB
     Indication: CROHN^S DISEASE
     Route: 042
     Dates: start: 20160705
  6. REMICADE [Suspect]
     Active Substance: INFLIXIMAB
     Indication: CROHN^S DISEASE
     Route: 042
     Dates: start: 20160825
  7. REMICADE [Suspect]
     Active Substance: INFLIXIMAB
     Indication: CROHN^S DISEASE
     Route: 042
     Dates: start: 2012
  8. PREDNISONE. [Concomitant]
     Active Substance: PREDNISONE
     Route: 048
  9. REMICADE [Suspect]
     Active Substance: INFLIXIMAB
     Indication: CROHN^S DISEASE
     Route: 042
  10. REMICADE [Suspect]
     Active Substance: INFLIXIMAB
     Indication: CROHN^S DISEASE
     Route: 042
  11. REMICADE [Suspect]
     Active Substance: INFLIXIMAB
     Indication: CROHN^S DISEASE
     Route: 042
     Dates: start: 20160830
  12. CIPRALEX [Concomitant]
     Active Substance: ESCITALOPRAM OXALATE
     Indication: CARDIAC DISORDER
     Route: 065
  13. IRON [Concomitant]
     Active Substance: IRON
     Route: 065

REACTIONS (24)
  - Malaise [Unknown]
  - Off label use [Unknown]
  - General physical health deterioration [Recovered/Resolved]
  - Haemoglobin decreased [Not Recovered/Not Resolved]
  - Abdominal pain [Not Recovered/Not Resolved]
  - Drug level below therapeutic [Unknown]
  - Fatigue [Unknown]
  - Haematochezia [Not Recovered/Not Resolved]
  - Pain [Unknown]
  - Glomerulonephritis membranoproliferative [Unknown]
  - Crohn^s disease [Unknown]
  - Constipation [Not Recovered/Not Resolved]
  - Fistula [Unknown]
  - Product use issue [Unknown]
  - Asthenia [Unknown]
  - Colitis [Unknown]
  - Dizziness [Not Recovered/Not Resolved]
  - Mucous stools [Unknown]
  - Myalgia [Unknown]
  - Decreased appetite [Unknown]
  - Frequent bowel movements [Not Recovered/Not Resolved]
  - Hypertension [Unknown]
  - Pyrexia [Unknown]
  - Weight decreased [Unknown]

NARRATIVE: CASE EVENT DATE: 2012
